FAERS Safety Report 8058978-3 (Version None)
Quarter: 2012Q1

REPORT INFORMATION
  Report Type: 
  Country: None (occurrence: None)
  Receive Date: 20120112
  Receipt Date: 20111228
  Transmission Date: 20120608
  Serious: Yes (Life-Threatening, Hospitalization, Other)
  Sender: FDA-Public Use
  Company Number: 2011MA018099

PATIENT
  Age: 2 Year
  Sex: Male

DRUGS (7)
  1. DEXAMETHASONE [Suspect]
     Indication: PRODUCT USED FOR UNKNOWN INDICATION
     Dosage: 0.15 MG/KG/DOSE, Q6H
  2. AMOXICILLIN [Suspect]
     Indication: PYREXIA
     Dosage: 40 MG/KG/DAY
  3. PHENYTOIN [Suspect]
     Indication: PARTIAL SEIZURES
  4. OXCARBAZEPINE [Suspect]
     Indication: PARTIAL SEIZURES
  5. ACYCLOVIR [Suspect]
     Indication: MENINGOENCEPHALITIS HERPETIC
     Dosage: 60/KG/DAY
  6. ACETAMINOPHEN [Suspect]
     Indication: PYREXIA
     Dosage: 15 MG/KG/DOSE
  7. VANCOMYCIN [Suspect]
     Indication: ENCEPHALITIS
     Dosage: 60 MG/KG/DAY

REACTIONS (13)
  - PYREXIA [None]
  - TARDIVE DYSKINESIA [None]
  - DYSTONIA [None]
  - HYPERTENSION [None]
  - TACHYCARDIA [None]
  - HYPOREFLEXIA [None]
  - LOSS OF CONSCIOUSNESS [None]
  - LARYNGEAL STENOSIS [None]
  - HYPOTONIA [None]
  - DYSKINESIA [None]
  - PARTIAL SEIZURES [None]
  - HYPERHIDROSIS [None]
  - AUTONOMIC NERVOUS SYSTEM IMBALANCE [None]
